FAERS Safety Report 9760182 (Version 1)
Quarter: 2013Q4

REPORT INFORMATION
  Report Type: Spontaneous
  Country: US (occurrence: US)
  Receive Date: 20131216
  Receipt Date: 20131216
  Transmission Date: 20140711
  Serious: Yes (Other)
  Sender: FDA-Public Use
  Company Number: US-GILEAD-2010-0026630

PATIENT
  Sex: Male

DRUGS (11)
  1. LETAIRIS [Suspect]
     Indication: PULMONARY ARTERIAL HYPERTENSION
     Route: 048
     Dates: start: 20090319, end: 20100113
  2. ATENOLOL [Concomitant]
  3. TRICOR [Concomitant]
  4. PLAVIX [Concomitant]
  5. ZETIA [Concomitant]
  6. ASPIRIN [Concomitant]
  7. NITROBID [Concomitant]
  8. CALCIUM [Concomitant]
  9. PREDNISONE [Concomitant]
  10. DIAMOX [Concomitant]
  11. ALLOPURINOL [Concomitant]

REACTIONS (1)
  - Drug ineffective [Unknown]
